FAERS Safety Report 18273514 (Version 1)
Quarter: 2020Q3

REPORT INFORMATION
  Report Type: Spontaneous
  Country: US (occurrence: US)
  Receive Date: 20200916
  Receipt Date: 20200916
  Transmission Date: 20201103
  Serious: Yes (Other)
  Sender: FDA-Public Use
  Company Number: None

PATIENT
  Age: 37 Year
  Sex: Female
  Weight: 101.25 kg

DRUGS (1)
  1. NATURE?THROID [Suspect]
     Active Substance: THYROID, PORCINE

REACTIONS (8)
  - Thyroid hormones increased [None]
  - Recalled product administered [None]
  - Drug ineffective [None]
  - Depression [None]
  - Food craving [None]
  - Sleep disorder [None]
  - Anger [None]
  - Hair disorder [None]

NARRATIVE: CASE EVENT DATE: 20200916
